FAERS Safety Report 8480894-3 (Version None)
Quarter: 2012Q3

REPORT INFORMATION
  Report Type: 
  Country: None (occurrence: None)
  Receive Date: 20120702
  Receipt Date: 20120627
  Transmission Date: 20120928
  Serious: No
  Sender: FDA-Public Use
  Company Number: US-BAYER-2012-063736

PATIENT

DRUGS (1)
  1. CIPROFLOXACIN HCL [Suspect]

REACTIONS (2)
  - SENSATION OF HEAVINESS [None]
  - HYPOAESTHESIA [None]
